FAERS Safety Report 8536583-X (Version None)
Quarter: 2012Q3

REPORT INFORMATION
  Report Type: 
  Country: None (occurrence: None)
  Receive Date: 20120725
  Receipt Date: 20120724
  Transmission Date: 20120928
  Serious: Yes (Other)
  Sender: FDA-Public Use
  Company Number: US-ROCHE-1061203

PATIENT
  Sex: Male
  Weight: 68.1 kg

DRUGS (3)
  1. ACCUTANE [Suspect]
     Route: 065
     Dates: start: 19850301, end: 19850501
  2. ACCUTANE [Suspect]
     Indication: ACNE
     Route: 065
     Dates: start: 19850101
  3. ACCUTANE [Suspect]
     Route: 065
     Dates: end: 19850731

REACTIONS (4)
  - INFLAMMATORY BOWEL DISEASE [None]
  - COLITIS ULCERATIVE [None]
  - DEPRESSION [None]
  - INTESTINAL HAEMORRHAGE [None]
